FAERS Safety Report 15233169 (Version 1)
Quarter: 2018Q3

REPORT INFORMATION
  Report Type: Report from Study
  Country: ES (occurrence: ES)
  Receive Date: 20180802
  Receipt Date: 20180802
  Transmission Date: 20181010
  Serious: Yes (Life-Threatening, Hospitalization)
  Sender: FDA-Public Use
  Company Number: ES-TEVA-2018-ES-933349

PATIENT
  Age: 10 Day
  Sex: Female

DRUGS (1)
  1. IBUPROFENO [Suspect]
     Active Substance: IBUPROFEN
     Dosage: 15 MG/KG DIA DU SEGUIDO DE 10 MG/KG/DOSIS X 2 D?AS
     Route: 042
     Dates: start: 20171110, end: 20171112

REACTIONS (2)
  - Necrotising colitis [Recovered/Resolved with Sequelae]
  - Thrombocytopenia [Recovered/Resolved]

NARRATIVE: CASE EVENT DATE: 20171112
